FAERS Safety Report 9278475 (Version 1)
Quarter: 2013Q2

REPORT INFORMATION
  Report Type: Spontaneous
  Country: US (occurrence: US)
  Receive Date: 20130508
  Receipt Date: 20130508
  Transmission Date: 20140414
  Serious: Yes (Life-Threatening, Hospitalization)
  Sender: FDA-Public Use
  Company Number: US-ROCHE-1221664

PATIENT
  Sex: Female

DRUGS (1)
  1. BONIVA [Suspect]
     Indication: BONE DENSITY ABNORMAL
     Route: 048

REACTIONS (6)
  - Ulcer haemorrhage [Recovering/Resolving]
  - Local swelling [Recovering/Resolving]
  - Pulmonary embolism [Recovering/Resolving]
  - Aphagia [Recovering/Resolving]
  - Weight decreased [Recovering/Resolving]
  - Pain [Recovering/Resolving]
